FAERS Safety Report 4979921-7 (Version None)
Quarter: 2006Q2

REPORT INFORMATION
  Report Type: 
  Country: None (occurrence: None)
  Receive Date: 20060421
  Receipt Date: 20060411
  Transmission Date: 20061013
  Serious: Yes (Life-Threatening, Hospitalization)
  Sender: FDA-Public Use
  Company Number: CA-MERCK-0604CAN00035

PATIENT
  Age: 43 Year
  Sex: Female

DRUGS (3)
  1. MAXALT-MLT [Suspect]
     Indication: MIGRAINE
     Route: 048
     Dates: start: 20060330
  2. CYPROTERONE ACETATE AND ETHINYL ESTRADIOL [Concomitant]
     Indication: CONTRACEPTION
     Route: 065
  3. FLUTICASONE PROPIONATE [Concomitant]
     Indication: RHINITIS ALLERGIC
     Route: 055
     Dates: start: 20040101

REACTIONS (2)
  - APHASIA [None]
  - HEMIPARESIS [None]
